FAERS Safety Report 18441442 (Version 1)
Quarter: 2020Q4

REPORT INFORMATION
  Report Type: Spontaneous
  Country: FR (occurrence: FR)
  Receive Date: 20201029
  Receipt Date: 20201029
  Transmission Date: 20210114
  Serious: Yes (Other)
  Sender: FDA-Public Use
  Company Number: FR-TEVA-2020-FR-1841879

PATIENT
  Age: 57 Year
  Sex: Female
  Weight: 70 kg

DRUGS (3)
  1. EXEMESTANE. [Suspect]
     Active Substance: EXEMESTANE
     Indication: BREAST CANCER
     Dosage: UNIT DOSE : 25 MG
     Route: 048
     Dates: start: 202005
  2. ERLOTINIB [Suspect]
     Active Substance: ERLOTINIB
     Indication: BREAST CANCER
     Dosage: UNIT DOSE : 1 DOSAGE FORMS
     Route: 048
     Dates: start: 202002
  3. TRASTUZUMAB  ((MAMMIFERE/HAMSTER/CELLULES CHO)) [Suspect]
     Active Substance: TRASTUZUMAB
     Indication: BREAST CANCER
     Dosage: UNIT DOSE : 1 DOSAGE FORMS
     Route: 041
     Dates: start: 202002

REACTIONS (2)
  - Pruritus [Not Recovered/Not Resolved]
  - Paraesthesia [Not Recovered/Not Resolved]

NARRATIVE: CASE EVENT DATE: 202005
